FAERS Safety Report 14356037 (Version 3)
Quarter: 2018Q1

REPORT INFORMATION
  Report Type: Spontaneous
  Country: DE (occurrence: DE)
  Receive Date: 20180105
  Receipt Date: 20180205
  Transmission Date: 20180509
  Serious: Yes (Death, Hospitalization, Other)
  Sender: FDA-Public Use
  Company Number: DE-WEST-WARD PHARMACEUTICALS CORP.-DE-H14001-18-00079

PATIENT
  Age: 52 Year
  Sex: Female
  Weight: 66 kg

DRUGS (28)
  1. FOLINIC ACID [Suspect]
     Active Substance: LEUCOVORIN
     Route: 042
     Dates: start: 20150626, end: 20150730
  2. OXALIPLATIN. [Suspect]
     Active Substance: OXALIPLATIN
     Route: 042
     Dates: start: 20150627, end: 20150731
  3. GRANOCYTE [Concomitant]
     Active Substance: LENOGRASTIM
     Indication: NEUTROPENIA
     Route: 058
     Dates: start: 20150615, end: 20150810
  4. FOLINIC ACID [Suspect]
     Active Substance: LEUCOVORIN
     Route: 042
     Dates: start: 20151210, end: 20160121
  5. PEGYLATED LIPOSOMAL IRINOTECAN [Suspect]
     Active Substance: IRINOTECAN HYDROCHLORIDE
     Route: 042
     Dates: start: 20150626, end: 20150626
  6. AVASTIN [Suspect]
     Active Substance: BEVACIZUMAB
     Route: 042
     Dates: start: 20160630
  7. FOLINIC ACID [Suspect]
     Active Substance: LEUCOVORIN
     Indication: COLORECTAL CANCER
     Route: 042
     Dates: start: 20150428, end: 20150526
  8. 5-FLUOROURACIL [Suspect]
     Active Substance: FLUOROURACIL
     Route: 042
     Dates: start: 20160908, end: 20160909
  9. PEGYLATED LIPOSOMAL IRINOTECAN [Suspect]
     Active Substance: IRINOTECAN HYDROCHLORIDE
     Route: 042
     Dates: start: 20150608, end: 20150608
  10. PEGYLATED LIPOSOMAL IRINOTECAN [Suspect]
     Active Substance: IRINOTECAN HYDROCHLORIDE
     Route: 042
     Dates: start: 20150713, end: 20150730
  11. OXALIPLATIN. [Suspect]
     Active Substance: OXALIPLATIN
     Indication: COLORECTAL CANCER
     Dosage: 110-140
     Route: 042
     Dates: start: 20150428, end: 20150609
  12. AVASTIN [Suspect]
     Active Substance: BEVACIZUMAB
     Route: 042
     Dates: start: 20160107
  13. FOLINIC ACID [Suspect]
     Active Substance: LEUCOVORIN
     Dosage: DOSAGES BETWEEN 255 MG AND 645 MG
     Route: 042
     Dates: start: 20151126, end: 20151126
  14. FOLINIC ACID [Suspect]
     Active Substance: LEUCOVORIN
     Dosage: DOSAGES BETWEEN 255 MG AND 645 MG (1)
     Route: 042
     Dates: end: 20160630
  15. FOLINIC ACID [Suspect]
     Active Substance: LEUCOVORIN
     Route: 042
     Dates: start: 20160908, end: 20160908
  16. 5-FLUOROURACIL [Suspect]
     Active Substance: FLUOROURACIL
     Route: 040
     Dates: start: 20160428, end: 20160428
  17. 5-FLUOROURACIL [Suspect]
     Active Substance: FLUOROURACIL
     Route: 042
     Dates: start: 20150428, end: 20150430
  18. PEGYLATED LIPOSOMAL IRINOTECAN [Suspect]
     Active Substance: IRINOTECAN HYDROCHLORIDE
     Dosage: (1)
     Route: 042
     Dates: end: 20150630
  19. FOLINIC ACID [Suspect]
     Active Substance: LEUCOVORIN
     Route: 042
     Dates: start: 20150608, end: 20150608
  20. FOLINIC ACID [Suspect]
     Active Substance: LEUCOVORIN
     Route: 042
     Dates: start: 20150813, end: 20151008
  21. OXALIPLATIN. [Suspect]
     Active Substance: OXALIPLATIN
     Route: 042
     Dates: start: 20150814, end: 20150925
  22. PEGYLATED LIPOSOMAL IRINOTECAN [Suspect]
     Active Substance: IRINOTECAN HYDROCHLORIDE
     Indication: COLORECTAL CANCER
     Route: 042
     Dates: start: 20160908, end: 20160908
  23. PEGYLATED LIPOSOMAL IRINOTECAN [Suspect]
     Active Substance: IRINOTECAN HYDROCHLORIDE
     Route: 042
     Dates: start: 20150428, end: 20150526
  24. PEGYLATED LIPOSOMAL IRINOTECAN [Suspect]
     Active Substance: IRINOTECAN HYDROCHLORIDE
     Route: 042
     Dates: start: 20150813, end: 20151008
  25. CLEXANE [Concomitant]
     Active Substance: ENOXAPARIN SODIUM
     Indication: THROMBOSIS PROPHYLAXIS
     Route: 058
     Dates: start: 20150427
  26. 5-FLUOROURACIL [Suspect]
     Active Substance: FLUOROURACIL
     Indication: COLORECTAL CANCER
     Route: 040
     Dates: start: 20151126, end: 20151126
  27. AVASTIN [Suspect]
     Active Substance: BEVACIZUMAB
     Indication: COLORECTAL CANCER
     Route: 042
     Dates: start: 20150428
  28. AVASTIN [Suspect]
     Active Substance: BEVACIZUMAB
     Route: 042
     Dates: start: 20160908

REACTIONS (8)
  - Bladder tamponade [Unknown]
  - Cystitis haemorrhagic [Recovering/Resolving]
  - Vomiting [Recovered/Resolved]
  - Metastases to meninges [Unknown]
  - Metastases to central nervous system [Fatal]
  - Mucosal inflammation [Recovered/Resolved]
  - Proteinuria [Recovered/Resolved]
  - Cystitis radiation [Recovering/Resolving]

NARRATIVE: CASE EVENT DATE: 20160107
